FAERS Safety Report 23249793 (Version 1)
Quarter: 2023Q4

REPORT INFORMATION
  Report Type: Spontaneous
  Country: US (occurrence: US)
  Receive Date: 20231201
  Receipt Date: 20231201
  Transmission Date: 20240109
  Serious: No
  Sender: FDA-Public Use
  Company Number: US-009507513-2311USA001242

PATIENT
  Sex: Female

DRUGS (14)
  1. KEYTRUDA [Suspect]
     Active Substance: PEMBROLIZUMAB
     Indication: Endometrial cancer metastatic
     Dosage: UNK
     Dates: start: 2023
  2. LENVATINIB MESYLATE [Suspect]
     Active Substance: LENVATINIB MESYLATE
     Indication: Endometrial cancer metastatic
     Dosage: 4 MILLIGRAM, QD
     Route: 048
     Dates: start: 20231003
  3. LISINOPRIL [Concomitant]
     Active Substance: LISINOPRIL
  4. ZYRTEC [Concomitant]
     Active Substance: CETIRIZINE HYDROCHLORIDE
  5. METFORMIN HYDROCHLORIDE [Concomitant]
     Active Substance: METFORMIN HYDROCHLORIDE
  6. PROBIOTICS NOS [Concomitant]
     Active Substance: PROBIOTICS NOS
  7. OXYBUTYNIN [Concomitant]
     Active Substance: OXYBUTYNIN
  8. EXEMESTANE [Concomitant]
     Active Substance: EXEMESTANE
  9. ALLERGY EYES [Concomitant]
  10. ALLERGY RELIEF-D [Concomitant]
     Active Substance: LORATADINE\PSEUDOEPHEDRINE SULFATE
  11. ALLOPURINOL [Concomitant]
     Active Substance: ALLOPURINOL
  12. LEVOTHYROXINE [Concomitant]
     Active Substance: LEVOTHYROXINE
  13. NASONEX [Concomitant]
     Active Substance: MOMETASONE FUROATE
  14. VITAMIN D3 [Concomitant]
     Active Substance: CHOLECALCIFEROL

REACTIONS (5)
  - Hypersomnia [Recovered/Resolved]
  - Diarrhoea [Recovered/Resolved]
  - Colon injury [Recovering/Resolving]
  - Pain in extremity [Recovering/Resolving]
  - Product use issue [Unknown]

NARRATIVE: CASE EVENT DATE: 20231001
